FAERS Safety Report 14619637 (Version 6)
Quarter: 2018Q2

REPORT INFORMATION
  Report Type: Report from Study
  Country: US (occurrence: US)
  Receive Date: 20180309
  Receipt Date: 20180614
  Transmission Date: 20180711
  Serious: Yes (Hospitalization, Other)
  Sender: FDA-Public Use
  Company Number: US-BAYER-2018-040046

PATIENT
  Age: 78 Year
  Sex: Female

DRUGS (3)
  1. STIVARGA [Suspect]
     Active Substance: REGORAFENIB
     Indication: COLORECTAL CANCER METASTATIC
     Dosage: DAILY DOSE 160 MG (3 WEEKS ON 1 WEEK OFF)
     Route: 048
     Dates: start: 20180217, end: 20180221
  2. STIVARGA [Suspect]
     Active Substance: REGORAFENIB
     Indication: HEPATOCELLULAR CARCINOMA
     Dosage: DAILY DOSE 40 MG MORNING/EVENING
     Route: 048
     Dates: start: 20180228, end: 20180303
  3. STIVARGA [Suspect]
     Active Substance: REGORAFENIB
     Indication: COLORECTAL CANCER METASTATIC
     Dosage: 80 MG DAILY DAILY / 3 WEEKS ON 1 WEEK OFF
     Route: 048
     Dates: start: 20180304, end: 20180604

REACTIONS (37)
  - Balance disorder [Recovered/Resolved]
  - Haematochezia [Recovered/Resolved]
  - Depressed mood [None]
  - Abdominal pain upper [Recovered/Resolved]
  - Muscle spasms [Recovering/Resolving]
  - Flatulence [None]
  - Asthenia [Recovering/Resolving]
  - Decreased appetite [None]
  - Constipation [Not Recovered/Not Resolved]
  - Dizziness [None]
  - Faeces pale [Recovered/Resolved]
  - Intentional product use issue [None]
  - Head discomfort [Recovered/Resolved]
  - Vomiting [Recovered/Resolved]
  - Gait disturbance [Recovered/Resolved]
  - Gait deviation [Recovered/Resolved]
  - Flatulence [Recovered/Resolved]
  - Paraesthesia [Recovered/Resolved]
  - Constipation [Recovered/Resolved]
  - Fatigue [Recovering/Resolving]
  - Pruritus [Recovering/Resolving]
  - Vomiting [Recovered/Resolved]
  - Drug dose omission [None]
  - Limb discomfort [Recovered/Resolved]
  - Faeces discoloured [Recovered/Resolved]
  - Skin discolouration [None]
  - Exercise tolerance decreased [Not Recovered/Not Resolved]
  - Blood pressure increased [Recovering/Resolving]
  - Back pain [Recovering/Resolving]
  - Fatigue [None]
  - Off label use [None]
  - Dizziness [Recovered/Resolved]
  - Head discomfort [Recovered/Resolved]
  - Fatigue [None]
  - Hypotension [Recovered/Resolved]
  - Weight decreased [Not Recovered/Not Resolved]
  - Intentional product use issue [None]

NARRATIVE: CASE EVENT DATE: 2018
